FAERS Safety Report 4684309-2 (Version None)
Quarter: 2005Q2

REPORT INFORMATION
  Report Type: 
  Country: None (occurrence: None)
  Receive Date: 20050607
  Receipt Date: 20050525
  Transmission Date: 20051028
  Serious: Yes (Hospitalization)
  Sender: FDA-Public Use
  Company Number: 2005UW08565

PATIENT
  Age: 209 Month
  Sex: Female

DRUGS (4)
  1. IRESSA [Suspect]
     Route: 048
  2. IRINOTECAN [Suspect]
  3. ONDANSETRON [Concomitant]
  4. MORPHINE SULFATE [Concomitant]
     Indication: PAIN

REACTIONS (10)
  - DIARRHOEA [None]
  - DRUG INTOLERANCE [None]
  - ELECTROLYTE IMBALANCE [None]
  - HAEMOGLOBIN DECREASED [None]
  - NAUSEA [None]
  - NEUTROPENIA [None]
  - ORAL INTAKE REDUCED [None]
  - PYREXIA [None]
  - SHOULDER PAIN [None]
  - VOMITING [None]
